FAERS Safety Report 13345485 (Version 1)
Quarter: 2017Q1

REPORT INFORMATION
  Report Type: Spontaneous
  Country: US (occurrence: US)
  Receive Date: 20170316
  Receipt Date: 20170316
  Transmission Date: 20170428
  Serious: No
  Sender: FDA-Public Use
  Company Number: None

PATIENT
  Age: 22 Year
  Sex: Male

DRUGS (1)
  1. HUMATROPE [Suspect]
     Active Substance: SOMATROPIN
     Indication: MALIGNANT CONNECTIVE TISSUE NEOPLASM
     Route: 058
     Dates: start: 20160313

REACTIONS (2)
  - Anger [None]
  - Fatigue [None]

NARRATIVE: CASE EVENT DATE: 20160708
